FAERS Safety Report 9718195 (Version 1)
Quarter: 2013Q4

REPORT INFORMATION
  Report Type: Spontaneous
  Country: US (occurrence: US)
  Receive Date: 20131125
  Receipt Date: 20131125
  Transmission Date: 20140711
  Serious: No
  Sender: FDA-Public Use
  Company Number: US-VIVUS-2013V1000085

PATIENT
  Age: 55 Year
  Sex: Female
  Weight: 85.81 kg

DRUGS (5)
  1. QSYMIA [Suspect]
     Indication: WEIGHT DECREASED
     Route: 048
     Dates: start: 201212
  2. VIVELLE PATCH [Concomitant]
     Indication: HORMONE REPLACEMENT THERAPY
     Route: 062
     Dates: start: 2009
  3. PROMETRIUM [Concomitant]
     Indication: HORMONE REPLACEMENT THERAPY
     Route: 048
     Dates: start: 2009
  4. LIPITOR [Concomitant]
     Indication: DYSLIPIDAEMIA
     Route: 048
  5. HYDROCHLOROTHIAZIDE [Concomitant]
     Indication: HYPERTENSION
     Route: 048

REACTIONS (1)
  - Vaginal haemorrhage [Not Recovered/Not Resolved]
